FAERS Safety Report 19934251 (Version 2)
Quarter: 2021Q4

REPORT INFORMATION
  Report Type: Spontaneous
  Country: US (occurrence: US)
  Receive Date: 20211008
  Receipt Date: 20211019
  Transmission Date: 20220303
  Serious: Yes (Other)
  Sender: FDA-Public Use
  Company Number: US-JUBILANT CADISTA PHARMACEUTICALS-2021JUB00300

PATIENT
  Age: 73 Year
  Sex: Female
  Weight: 74.83 kg

DRUGS (7)
  1. LOSARTAN POTASSIUM AND HYDROCHLOROTHIAZIDE [Suspect]
     Active Substance: HYDROCHLOROTHIAZIDE\LOSARTAN POTASSIUM
     Indication: Hypertension
     Dosage: 1 TABLETS, 1X/DAY IN THE MORNING
     Route: 048
     Dates: start: 20210907, end: 20210921
  2. UNSPECIFIED OTC SUPPLEMENTS [Concomitant]
  3. NEXIUM OTC (GENERIC) [Concomitant]
  4. NORVASC [Concomitant]
     Active Substance: AMLODIPINE BESYLATE
     Dosage: 5 MG, 1X/DAY AT NIGHT
  5. APRESOLINE HYDROCHLORIDE [Concomitant]
     Active Substance: HYDRALAZINE HYDROCHLORIDE
     Indication: Hypertension
     Dosage: 25 MG, 3X/DAY
     Route: 048
     Dates: start: 202011
  6. BONIVA [Concomitant]
     Active Substance: IBANDRONATE SODIUM
     Indication: Osteoporosis
     Dosage: UNK, 1X/MONTH
     Dates: start: 202102
  7. LECITHIN [Concomitant]
     Active Substance: LECITHIN

REACTIONS (4)
  - Blood pressure increased [Recovering/Resolving]
  - Eye haemorrhage [Recovering/Resolving]
  - Drug ineffective [Recovered/Resolved]
  - Product substitution issue [Recovered/Resolved]

NARRATIVE: CASE EVENT DATE: 20210901
